FAERS Safety Report 21452389 (Version 2)
Quarter: 2022Q4

REPORT INFORMATION
  Report Type: Other
  Country: DE (occurrence: None)
  Receive Date: 20221013
  Receipt Date: 20221110
  Transmission Date: 20230113
  Serious: No
  Sender: FDA-Public Use
  Company Number: DE-ROCHE-2958855

PATIENT
  Age: 42 Year
  Sex: Female

DRUGS (9)
  1. OCREVUS [Suspect]
     Active Substance: OCRELIZUMAB
     Indication: Relapsing-remitting multiple sclerosis
     Dosage: 600 MG
     Route: 042
     Dates: start: 20210927
  2. OCREVUS [Suspect]
     Active Substance: OCRELIZUMAB
     Dosage: FIRST MAINTENANCE DOSE ON 29/MAR2022
     Route: 042
     Dates: start: 20210927
  3. VITAMIN D3 [Concomitant]
     Active Substance: CHOLECALCIFEROL
  4. VITAMIN D3 [Concomitant]
     Active Substance: CHOLECALCIFEROL
  5. LEVOTHYROXINE [Concomitant]
     Active Substance: LEVOTHYROXINE
  6. LEVOTHYROXINE [Concomitant]
     Active Substance: LEVOTHYROXINE
  7. BACLOFEN [Concomitant]
     Active Substance: BACLOFEN
     Dosage: AS NEEDED
  8. CALCIUM [Concomitant]
     Active Substance: CALCIUM
  9. PREGABALIN [Concomitant]
     Active Substance: PREGABALIN
     Dosage: 25 MG (3-5 TABLETS DAILY)

REACTIONS (13)
  - Sensory disturbance [Recovered/Resolved]
  - Neurodermatitis [Recovered/Resolved]
  - Dry eye [Recovering/Resolving]
  - Eye irritation [Recovered/Resolved]
  - Chest pain [Not Recovered/Not Resolved]
  - Neoplasm progression [Recovered/Resolved]
  - Dry skin [Recovered/Resolved]
  - Angular cheilitis [Recovered/Resolved]
  - Abdominal pain lower [Recovered/Resolved]
  - Pain in extremity [Unknown]
  - Gait disturbance [Unknown]
  - Perioral dermatitis [Unknown]
  - COVID-19 [Recovered/Resolved]

NARRATIVE: CASE EVENT DATE: 20211001
